FAERS Safety Report 4355395-4 (Version None)
Quarter: 2004Q2

REPORT INFORMATION
  Report Type: 
  Country: None (occurrence: None)
  Receive Date: 20040504
  Receipt Date: 20040423
  Transmission Date: 20050107
  Serious: Yes (Other)
  Sender: FDA-Public Use
  Company Number: WAES 0404USA02072

PATIENT
  Age: 27 Year
  Sex: Male

DRUGS (4)
  1. AMINOHIPPURATE SODIUM [Suspect]
     Indication: RENAL FUNCTION TEST
     Dosage: 103.3 MG/1X/IV
     Route: 042
     Dates: start: 20040407, end: 20040407
  2. INSULIN [Suspect]
     Indication: RENAL FUNCTION TEST
     Dosage: 4420 MG/1X/IV
     Route: 042
     Dates: start: 20040407, end: 20040407
  3. INSULIN [Suspect]
     Indication: RENAL FUNCTION TEST
     Dosage: 264.5 MG/1X/IV
     Route: 042
     Dates: start: 20040407, end: 20040407
  4. PLACEBO (UNSPECIFIED) [Concomitant]

REACTIONS (2)
  - ANAPHYLACTIC REACTION [None]
  - INFUSION RELATED REACTION [None]
